FAERS Safety Report 7970044-1 (Version None)
Quarter: 2011Q4

REPORT INFORMATION
  Report Type: 
  Country: None (occurrence: None)
  Receive Date: 20111122
  Receipt Date: 20110823
  Transmission Date: 20120403
  Serious: No
  Sender: FDA-Public Use
  Company Number: PHHY2011US47886

PATIENT
  Age: 47 Year
  Sex: Female

DRUGS (5)
  1. FOSAMAX [Concomitant]
  2. FAMPRIDINE (FAMPRIDINE) [Concomitant]
  3. MORPHINE [Concomitant]
  4. LUNESTA [Concomitant]
  5. GILENYA [Suspect]
     Indication: MULTIPLE SCLEROSIS
     Dosage: 0.5 MG, QD, ORAL
     Route: 048
     Dates: start: 20110526

REACTIONS (4)
  - HYPOAESTHESIA [None]
  - BLOOD PRESSURE FLUCTUATION [None]
  - VISUAL IMPAIRMENT [None]
  - VISUAL ACUITY REDUCED [None]
